FAERS Safety Report 11971527 (Version 1)
Quarter: 2016Q1

REPORT INFORMATION
  Report Type: Spontaneous
  Country: US (occurrence: US)
  Receive Date: 20160128
  Receipt Date: 20160128
  Transmission Date: 20160526
  Serious: Yes (Other)
  Sender: FDA-Public Use
  Company Number: US-APOTEX-2016AP006011

PATIENT
  Age: 68 Year
  Sex: Female

DRUGS (2)
  1. PAXIL CR [Suspect]
     Active Substance: PAROXETINE HYDROCHLORIDE
     Indication: ANXIETY
     Dosage: 25 MG, UNK
     Route: 065
     Dates: start: 201309
  2. PAXIL CR [Suspect]
     Active Substance: PAROXETINE HYDROCHLORIDE
     Indication: DEPRESSION

REACTIONS (1)
  - Lung carcinoma cell type unspecified stage IV [Unknown]

NARRATIVE: CASE EVENT DATE: 20150401
